FAERS Safety Report 6109225-0 (Version None)
Quarter: 2009Q1

REPORT INFORMATION
  Report Type: 
  Country: None (occurrence: None)
  Receive Date: 20090310
  Receipt Date: 20090305
  Transmission Date: 20090719
  Serious: Yes (Life-Threatening)
  Sender: FDA-Public Use
  Company Number: JP-BRISTOL-MYERS SQUIBB COMPANY-14306427

PATIENT
  Age: 70 Year
  Sex: Male

DRUGS (5)
  1. PARAPLATIN [Suspect]
     Indication: NON-SMALL CELL LUNG CANCER
     Route: 041
     Dates: start: 20080811, end: 20080811
  2. TAXOTERE [Suspect]
     Indication: NON-SMALL CELL LUNG CANCER
     Route: 041
     Dates: start: 20080811, end: 20080811
  3. MUCOSTA [Concomitant]
     Route: 048
     Dates: start: 20080805
  4. TAKEPRON [Concomitant]
     Route: 048
     Dates: start: 20080805
  5. PURSENNID [Concomitant]
     Route: 048
     Dates: start: 20080807

REACTIONS (2)
  - LOSS OF CONSCIOUSNESS [None]
  - SUBDURAL HAEMATOMA [None]
